FAERS Safety Report 7017027-6 (Version None)
Quarter: 2010Q3

REPORT INFORMATION
  Report Type: 
  Country: None (occurrence: None)
  Receive Date: 20100927
  Receipt Date: 20100927
  Transmission Date: 20110219
  Serious: Yes (Other)
  Sender: FDA-Public Use
  Company Number: US-PFIZER INC-2010098373

PATIENT
  Sex: Male
  Weight: 107.94 kg

DRUGS (1)
  1. VIAGRA [Suspect]
     Indication: EXCESSIVE MASTURBATION
     Dosage: UNK
     Route: 048

REACTIONS (2)
  - ERECTION INCREASED [None]
  - IRRITABILITY [None]
